FAERS Safety Report 23692107 (Version 1)
Quarter: 2024Q2

REPORT INFORMATION
  Report Type: Spontaneous
  Country: IT (occurrence: IT)
  Receive Date: 20240401
  Receipt Date: 20240401
  Transmission Date: 20240715
  Serious: Yes (Hospitalization, Other)
  Sender: FDA-Public Use
  Company Number: None

PATIENT
  Age: 82 Year
  Sex: Male
  Weight: 78 kg

DRUGS (1)
  1. XARELTO [Suspect]
     Active Substance: RIVAROXABAN
     Indication: Atrial fibrillation
     Dosage: 20 MG, QD
     Route: 048
     Dates: start: 20231224, end: 20240106

REACTIONS (4)
  - Pneumonia pneumococcal [Unknown]
  - Duodenal ulcer haemorrhage [Recovered/Resolved]
  - Melaena [Unknown]
  - Anaemia [Unknown]

NARRATIVE: CASE EVENT DATE: 20240106
